FAERS Safety Report 8546828-8 (Version None)
Quarter: 2012Q3

REPORT INFORMATION
  Report Type: 
  Country: None (occurrence: None)
  Receive Date: 20120727
  Receipt Date: 20120202
  Transmission Date: 20120928
  Serious: No
  Sender: FDA-Public Use
  Company Number: US-ASTRAZENECA-2012SE07550

PATIENT
  Age: 75 Year
  Sex: Male
  Weight: 131.5 kg

DRUGS (8)
  1. VITAMIN B1 TAB [Concomitant]
  2. OMEPRAZOLE [Concomitant]
  3. VITAMIN D SHOTS [Concomitant]
  4. FOLIC ACID [Concomitant]
  5. GALACTAMINE [Concomitant]
  6. GABAPENTIN [Concomitant]
  7. LEXAPRO [Concomitant]
  8. SEROQUEL [Suspect]
     Indication: SLEEP DISORDER
     Route: 048
     Dates: start: 20120103

REACTIONS (4)
  - DIZZINESS [None]
  - OFF LABEL USE [None]
  - DIARRHOEA [None]
  - POLLAKIURIA [None]
